FAERS Safety Report 5890135-9 (Version None)
Quarter: 2008Q3

REPORT INFORMATION
  Report Type: 
  Country: None (occurrence: None)
  Receive Date: 20080919
  Receipt Date: 20080908
  Transmission Date: 20090109
  Serious: Yes (Life-Threatening, Hospitalization, Other)
  Sender: FDA-Public Use
  Company Number: JP-PFIZER INC-2008066261

PATIENT
  Sex: Male

DRUGS (8)
  1. ZOLOFT [Suspect]
     Route: 048
     Dates: start: 20080731, end: 20080801
  2. ABILIFY [Concomitant]
  3. LUVOX [Concomitant]
     Dosage: DAILY DOSE:50MG
     Route: 048
     Dates: start: 20050912, end: 20080801
  4. ALL OTHER THERAPEUTIC PRODUCTS [Concomitant]
  5. DOGMATYL [Concomitant]
     Dosage: DAILY DOSE:400MG
     Route: 048
     Dates: start: 20050912, end: 20080801
  6. NEULEPTIL [Concomitant]
     Dosage: DAILY DOSE:20MG
     Route: 048
     Dates: start: 20050912, end: 20080801
  7. SERENACE [Concomitant]
     Dosage: DAILY DOSE:2MG
     Route: 048
     Dates: start: 20050912, end: 20080801
  8. AKINETON [Concomitant]
     Dosage: DAILY DOSE:2MG
     Route: 048
     Dates: start: 20050912, end: 20080801

REACTIONS (6)
  - DYSPHAGIA [None]
  - INSOMNIA [None]
  - NEUROLEPTIC MALIGNANT SYNDROME [None]
  - PNEUMONIA ASPIRATION [None]
  - RHABDOMYOLYSIS [None]
  - WATER INTOXICATION [None]
